FAERS Safety Report 9425752 (Version 5)
Quarter: 2016Q1

REPORT INFORMATION
  Report Type: Spontaneous
  Country: US (occurrence: US)
  Receive Date: 20130729
  Receipt Date: 20160208
  Transmission Date: 20160526
  Serious: Yes (Hospitalization, Other)
  Sender: FDA-Public Use
  Company Number: US-PFIZER INC-2013219384

PATIENT
  Sex: Female
  Weight: 86 kg

DRUGS (2)
  1. LIPITOR [Concomitant]
     Active Substance: ATORVASTATIN CALCIUM
     Dosage: UNK
  2. PRISTIQ EXTENDED RELEASE [Suspect]
     Active Substance: DESVENLAFAXINE SUCCINATE
     Indication: DEPRESSION
     Dosage: 50 MG, 1X/DAY
     Route: 048
     Dates: start: 201201

REACTIONS (9)
  - Road traffic accident [Recovered/Resolved with Sequelae]
  - Suicidal ideation [Unknown]
  - Post-traumatic stress disorder [Unknown]
  - Analgesic therapy [Unknown]
  - Concussion [Unknown]
  - Drug ineffective [Unknown]
  - Amnesia [Unknown]
  - Therapeutic response unexpected [Unknown]
  - Pain [Not Recovered/Not Resolved]

NARRATIVE: CASE EVENT DATE: 201308
